FAERS Safety Report 26096738 (Version 1)
Quarter: 2025Q4

REPORT INFORMATION
  Report Type: Spontaneous
  Country: JP (occurrence: JP)
  Receive Date: 20251127
  Receipt Date: 20251127
  Transmission Date: 20260118
  Serious: Yes (Hospitalization)
  Sender: AMGEN
  Company Number: JP-AMGEN-JPNSP2025234389

PATIENT
  Age: 59 Year
  Sex: Male

DRUGS (2)
  1. ETANERCEPT [Suspect]
     Active Substance: ETANERCEPT
     Indication: Rheumatoid arthritis
     Dosage: UNK
     Route: 065
  2. METHOTREXATE [Suspect]
     Active Substance: METHOTREXATE
     Indication: Rheumatoid arthritis
     Dosage: UNK
     Route: 065

REACTIONS (9)
  - Oesophageal squamous cell carcinoma [Unknown]
  - Extremity contracture [Unknown]
  - Joint contracture [Unknown]
  - Joint swelling [Unknown]
  - Blood creatine phosphokinase decreased [Unknown]
  - Blood albumin decreased [Unknown]
  - Hypotension [Unknown]
  - Arthralgia [Recovering/Resolving]
  - Drug ineffective [Unknown]
